FAERS Safety Report 13677072 (Version 1)
Quarter: 2017Q2

REPORT INFORMATION
  Report Type: Spontaneous
  Country: BR (occurrence: BR)
  Receive Date: 20170622
  Receipt Date: 20170622
  Transmission Date: 20170830
  Serious: Yes (Life-Threatening, Other)
  Sender: FDA-Public Use
  Company Number: BR-SUN PHARMACEUTICAL INDUSTRIES LTD-2017R1-143747

PATIENT
  Age: 78 Year
  Sex: Female

DRUGS (2)
  1. DOXORUBICIN [Suspect]
     Active Substance: DOXORUBICIN
     Indication: ANGIOSARCOMA RECURRENT
     Dosage: 55 MG/M2, CYCLICAL (EVERY FOUR WEEKS)
     Route: 065
  2. PACLITAXEL. [Suspect]
     Active Substance: PACLITAXEL
     Indication: ANGIOSARCOMA RECURRENT
     Dosage: 80 MG/M2, CYCLICAL (WEEKLY)
     Route: 065

REACTIONS (1)
  - Drug ineffective [Unknown]
